FAERS Safety Report 6047052-3 (Version None)
Quarter: 2009Q1

REPORT INFORMATION
  Report Type: 
  Country: None (occurrence: None)
  Receive Date: 20090122
  Receipt Date: 20090115
  Transmission Date: 20090719
  Serious: Yes (Hospitalization)
  Sender: FDA-Public Use
  Company Number: FR-ASTRAZENECA-2009CG00182

PATIENT
  Age: 27010 Day
  Sex: Female

DRUGS (11)
  1. XYLOCAINE [Suspect]
     Route: 014
     Dates: start: 20081217, end: 20081217
  2. ATHYMIL [Suspect]
     Indication: DEPRESSION
     Route: 048
     Dates: start: 20081201, end: 20081223
  3. VOLTAREN [Concomitant]
     Indication: ARTHRITIS
     Route: 061
     Dates: start: 20081107, end: 20081207
  4. ESIDRIX [Concomitant]
  5. DILTIAZEM HCL [Concomitant]
  6. INSULATARD [Concomitant]
  7. XANAX [Concomitant]
  8. METFORMIN [Concomitant]
  9. TEGRETOL [Concomitant]
  10. RAMIPRIL [Concomitant]
  11. MEDIATOR [Concomitant]

REACTIONS (1)
  - ACUTE GENERALISED EXANTHEMATOUS PUSTULOSIS [None]
